FAERS Safety Report 8521223-6 (Version None)
Quarter: 2012Q3

REPORT INFORMATION
  Report Type: 
  Country: None (occurrence: None)
  Receive Date: 20120719
  Receipt Date: 20120706
  Transmission Date: 20120928
  Serious: Yes (Other)
  Sender: FDA-Public Use
  Company Number: JP-ROCHE-1072766

PATIENT
  Sex: Female
  Weight: 54 kg

DRUGS (1)
  1. XELODA [Suspect]
     Indication: BREAST CANCER
     Route: 048
     Dates: start: 20111110, end: 20120316

REACTIONS (1)
  - PNEUMONIA [None]
